FAERS Safety Report 13520603 (Version 1)
Quarter: 2017Q2

REPORT INFORMATION
  Report Type: Spontaneous
  Country: US (occurrence: US)
  Receive Date: 20170508
  Receipt Date: 20170508
  Transmission Date: 20170830
  Serious: Yes (Hospitalization, Other)
  Sender: FDA-Public Use
  Company Number: US-CHARTWELL PHARMA-2020355

PATIENT
  Age: 11 Year
  Sex: Male
  Weight: 30 kg

DRUGS (6)
  1. FENTANYL. [Suspect]
     Active Substance: FENTANYL
  2. ROCURONIUM [Suspect]
     Active Substance: ROCURONIUM BROMIDE
  3. PROPOFOL. [Suspect]
     Active Substance: PROPOFOL
  4. ARIPIPRAZOLE. [Suspect]
     Active Substance: ARIPIPRAZOLE
  5. METHYLPHENIDATE. [Suspect]
     Active Substance: METHYLPHENIDATE
  6. CLONIDINE. [Suspect]
     Active Substance: CLONIDINE
     Indication: ATTENTION DEFICIT/HYPERACTIVITY DISORDER

REACTIONS (1)
  - Dystonia [Recovered/Resolved]
